FAERS Safety Report 18735296 (Version 1)
Quarter: 2021Q1

REPORT INFORMATION
  Report Type: Spontaneous
  Country: CN (occurrence: CN)
  Receive Date: 20210113
  Receipt Date: 20210113
  Transmission Date: 20210419
  Serious: Yes (Other)
  Sender: FDA-Public Use
  Company Number: CN-SA-2020SA375884

PATIENT
  Age: 59 Year
  Sex: Female

DRUGS (1)
  1. AMARYL [Suspect]
     Active Substance: GLIMEPIRIDE
     Indication: ADVERSE DRUG REACTION
     Dosage: 2 DF, QD
     Route: 048
     Dates: start: 20201217, end: 20201217

REACTIONS (3)
  - Arrhythmia [Recovering/Resolving]
  - Vomiting [Recovering/Resolving]
  - Nausea [Recovering/Resolving]

NARRATIVE: CASE EVENT DATE: 20201217
